FAERS Safety Report 26111316 (Version 1)
Quarter: 2025Q4

REPORT INFORMATION
  Report Type: Spontaneous
  Country: BR (occurrence: BR)
  Receive Date: 20251202
  Receipt Date: 20251202
  Transmission Date: 20260117
  Serious: Yes (Other)
  Sender: TAKEDA
  Company Number: BR-TAKEDA-2025TUS107054

PATIENT
  Age: 89 Year
  Sex: Female

DRUGS (3)
  1. MESALAMINE [Suspect]
     Active Substance: MESALAMINE
     Indication: Intestinal polyp
     Dosage: 800 MILLIGRAM, QD
  2. MESALAMINE [Suspect]
     Active Substance: MESALAMINE
     Indication: Diverticulum intestinal
  3. VITAMIN D [Concomitant]
     Active Substance: VITAMIN D NOS
     Dosage: UNK

REACTIONS (12)
  - Pneumonia [Unknown]
  - Poor quality product administered [Unknown]
  - Product packaging quantity issue [Unknown]
  - Body height decreased [Unknown]
  - Gastrointestinal disorder [Unknown]
  - Bladder pain [Unknown]
  - Product use in unapproved indication [Unknown]
  - Blood pressure abnormal [Unknown]
  - Blood cholesterol abnormal [Unknown]
  - Malaise [Unknown]
  - Asthma [Unknown]
  - Abdominal pain [Unknown]

NARRATIVE: CASE EVENT DATE: 20251123
